FAERS Safety Report 20669843 (Version 1)
Quarter: 2022Q2

REPORT INFORMATION
  Report Type: Spontaneous
  Country: US (occurrence: US)
  Receive Date: 20220404
  Receipt Date: 20220404
  Transmission Date: 20220721
  Serious: Yes (Other)
  Sender: FDA-Public Use
  Company Number: US-TEVA-2022-US-2023871

PATIENT
  Age: 79 Year
  Sex: Female

DRUGS (2)
  1. AUSTEDO [Suspect]
     Active Substance: DEUTETRABENAZINE
     Indication: Huntington^s disease
     Dosage: 24 MILLIGRAM DAILY;
     Route: 065
  2. AUSTEDO [Suspect]
     Active Substance: DEUTETRABENAZINE
     Dosage: 18 MG AND 12 MG QAM
     Route: 065
     Dates: start: 2020

REACTIONS (4)
  - Huntington^s disease [Unknown]
  - Parkinsonism [Recovered/Resolved]
  - Reduced facial expression [Unknown]
  - Resting tremor [Unknown]
